FAERS Safety Report 18166084 (Version 1)
Quarter: 2020Q3

REPORT INFORMATION
  Report Type: Spontaneous
  Country: US (occurrence: US)
  Receive Date: 20200818
  Receipt Date: 20200818
  Transmission Date: 20201103
  Serious: No
  Sender: FDA-Public Use
  Company Number: US-ELI_LILLY_AND_COMPANY-US202008005209

PATIENT
  Age: 75 Year
  Sex: Female

DRUGS (1)
  1. REYVOW [Suspect]
     Active Substance: LASMIDITAN
     Indication: HEADACHE
     Route: 065

REACTIONS (7)
  - Paraesthesia [Unknown]
  - Nausea [Unknown]
  - Slow speech [Unknown]
  - Abnormal dreams [Unknown]
  - Asthenia [Unknown]
  - Speech disorder [Unknown]
  - Drug ineffective [Unknown]
